FAERS Safety Report 14563129 (Version 1)
Quarter: 2018Q1

REPORT INFORMATION
  Report Type: Spontaneous
  Country: US (occurrence: US)
  Receive Date: 20180221
  Receipt Date: 20180221
  Transmission Date: 20180509
  Serious: Yes (Hospitalization)
  Sender: FDA-Public Use
  Company Number: None

PATIENT
  Age: 49 Year
  Sex: Male

DRUGS (1)
  1. EPCLUSA [Suspect]
     Active Substance: SOFOSBUVIR\VELPATASVIR
     Indication: HEPATITIS C
     Route: 048
     Dates: start: 20180215

REACTIONS (7)
  - Throat irritation [None]
  - Tongue discomfort [None]
  - Dry throat [None]
  - Visual impairment [None]
  - Fatigue [None]
  - Oropharyngeal pain [None]
  - Cough [None]

NARRATIVE: CASE EVENT DATE: 20180220
